FAERS Safety Report 13191053 (Version 1)
Quarter: 2017Q1

REPORT INFORMATION
  Report Type: Report from Study
  Country: ES (occurrence: ES)
  Receive Date: 20170207
  Receipt Date: 20170207
  Transmission Date: 20170428
  Serious: Yes (Death)
  Sender: FDA-Public Use
  Company Number: ES-ROCHE-1889181

PATIENT
  Age: 62 Year

DRUGS (1)
  1. TOCILIZUMAB [Suspect]
     Active Substance: TOCILIZUMAB
     Indication: RHEUMATOID ARTHRITIS
     Route: 065
     Dates: start: 20160210

REACTIONS (1)
  - Intracranial haematoma [Fatal]

NARRATIVE: CASE EVENT DATE: 20160401
